FAERS Safety Report 9888419 (Version 1)
Quarter: 2014Q1

REPORT INFORMATION
  Report Type: Spontaneous
  Country: US (occurrence: US)
  Receive Date: 20140211
  Receipt Date: 20140211
  Transmission Date: 20141002
  Serious: No
  Sender: FDA-Public Use
  Company Number: US-ENDO PHARMACEUTICALS INC.-ALBU20130001

PATIENT
  Age: 35 Year
  Sex: Female

DRUGS (1)
  1. ALBUTEROL SULFATE SYRUP [Suspect]
     Indication: PRODUCT USED FOR UNKNOWN INDICATION
     Dosage: UNK
     Route: 048
     Dates: start: 20130505, end: 20130505

REACTIONS (1)
  - Migraine [Unknown]
